FAERS Safety Report 15309337 (Version 1)
Quarter: 2018Q3

REPORT INFORMATION
  Report Type: Spontaneous
  Country: US (occurrence: US)
  Receive Date: 20180811
  Receipt Date: 20180811
  Transmission Date: 20181010
  Serious: Yes (Other)
  Sender: FDA-Public Use
  Company Number: None

PATIENT
  Age: 50 Year
  Sex: Male
  Weight: 76.5 kg

DRUGS (1)
  1. TERBINAFINE HCL 250 MG TABS [Suspect]
     Active Substance: TERBINAFINE HYDROCHLORIDE
     Indication: FUNGAL INFECTION
     Route: 048
     Dates: start: 20180709, end: 20180810

REACTIONS (4)
  - Rash generalised [None]
  - Swelling [None]
  - Urticaria [None]
  - Pruritus generalised [None]

NARRATIVE: CASE EVENT DATE: 20180809
